FAERS Safety Report 9983306 (Version 1)
Quarter: 2014Q1

REPORT INFORMATION
  Report Type: Spontaneous
  Country: FR (occurrence: FR)
  Receive Date: 20140307
  Receipt Date: 20140307
  Transmission Date: 20141002
  Serious: Yes (Hospitalization)
  Sender: FDA-Public Use
  Company Number: FR-SA-2014SA024793

PATIENT
  Age: 67 Year
  Sex: Male

DRUGS (11)
  1. STILNOX [Suspect]
     Indication: PRODUCT USED FOR UNKNOWN INDICATION
     Dosage: STRENGTH: 10 MG
     Route: 048
  2. AMOXICILLIN/CLAVULANIC ACID [Suspect]
     Indication: PRODUCT USED FOR UNKNOWN INDICATION
     Dosage: 500MG/62MG
     Route: 048
     Dates: start: 20140108, end: 20140113
  3. INEXIUM [Suspect]
     Indication: PRODUCT USED FOR UNKNOWN INDICATION
     Dosage: 20MG
     Route: 048
  4. AMLOR [Suspect]
     Indication: PRODUCT USED FOR UNKNOWN INDICATION
     Dosage: 5MG
     Route: 048
  5. OXYNORM [Concomitant]
     Dosage: STRENGTH: 10 MG
     Route: 048
  6. DUROGESIC [Concomitant]
     Route: 062
  7. ACUPAN [Concomitant]
     Dosage: STRENGTH: 20 MG/2 ML
  8. MOVICOL [Concomitant]
     Dosage: POWDER FOR DRINKABLE SOLUTION
     Route: 048
  9. LYRICA [Concomitant]
     Dosage: STRENGTH: 50 MG
  10. ARTISIAL [Concomitant]
     Dosage: SPRAY
  11. ROCEPHINE [Concomitant]

REACTIONS (2)
  - Renal failure acute [Recovering/Resolving]
  - Hepatocellular injury [Recovering/Resolving]
